FAERS Safety Report 4899835-0 (Version None)
Quarter: 2006Q1

REPORT INFORMATION
  Report Type: 
  Country: None (occurrence: None)
  Receive Date: 20060113
  Receipt Date: 20050921
  Transmission Date: 20060701
  Serious: No
  Sender: FDA-Public Use
  Company Number: 2005SP002867

PATIENT
  Age: 45 Year
  Sex: Female
  Weight: 72.5755 kg

DRUGS (8)
  1. LUNESTA [Suspect]
     Indication: INSOMNIA
     Dosage: 3 MG; HS; ORAL
     Route: 048
     Dates: start: 20050101
  2. SIMVASTATIN [Concomitant]
  3. PLAVIX [Concomitant]
  4. PROZAC [Concomitant]
  5. ZETIA [Concomitant]
  6. DURAGESIC-100 [Concomitant]
  7. METHADONE [Concomitant]
  8. ACETYLSALICYLIC ACID SRT [Concomitant]

REACTIONS (1)
  - DYSGEUSIA [None]
